FAERS Safety Report 7701341-2 (Version None)
Quarter: 2011Q3

REPORT INFORMATION
  Report Type: 
  Country: None (occurrence: None)
  Receive Date: 20110822
  Receipt Date: 20110811
  Transmission Date: 20111222
  Serious: Yes (Death, Hospitalization)
  Sender: FDA-Public Use
  Company Number: JP-ELI_LILLY_AND_COMPANY-JP201108004707

PATIENT
  Age: 68 Year
  Sex: Male

DRUGS (3)
  1. ALIMTA [Suspect]
     Indication: LUNG ADENOCARCINOMA
     Dosage: 875 MG, OTHER
     Route: 042
     Dates: start: 20110225
  2. PANVITAN [Concomitant]
     Dosage: UNK
     Route: 065
     Dates: start: 20110208
  3. METHYCOBAL [Concomitant]
     Dosage: UNK
     Route: 065
     Dates: start: 20110208

REACTIONS (1)
  - INTERSTITIAL LUNG DISEASE [None]
